FAERS Safety Report 16946047 (Version 3)
Quarter: 2019Q4

REPORT INFORMATION
  Report Type: Spontaneous
  Country: US (occurrence: US)
  Receive Date: 20191022
  Receipt Date: 20191205
  Transmission Date: 20200122
  Serious: No
  Sender: FDA-Public Use
  Company Number: US-PFIZER INC-2019449317

PATIENT
  Age: 69 Year
  Sex: Female
  Weight: 88.89 kg

DRUGS (1)
  1. DOXYCYCLINE HYCLATE. [Suspect]
     Active Substance: DOXYCYCLINE HYCLATE
     Indication: URINARY TRACT INFECTION
     Dosage: 2 DF, DAILY (TWO A DAY)
     Dates: start: 20190810

REACTIONS (5)
  - Swollen tongue [Recovered/Resolved]
  - Swelling face [Recovered/Resolved]
  - Drug hypersensitivity [Recovered/Resolved]
  - Lip swelling [Recovered/Resolved]
  - Rash [Recovered/Resolved]

NARRATIVE: CASE EVENT DATE: 2019
